FAERS Safety Report 9244722 (Version 1)
Quarter: 2013Q2

REPORT INFORMATION
  Report Type: Spontaneous
  Country: US (occurrence: US)
  Receive Date: 20130422
  Receipt Date: 20130422
  Transmission Date: 20140414
  Serious: Yes (Death, Hospitalization)
  Sender: FDA-Public Use
  Company Number: US-JNJFOC-20130407878

PATIENT
  Age: 37 Year
  Sex: Female

DRUGS (2)
  1. REMICADE [Suspect]
     Indication: RHEUMATOID ARTHRITIS
     Route: 042
     Dates: start: 201302, end: 201302
  2. REMICADE [Suspect]
     Indication: RHEUMATOID ARTHRITIS
     Dosage: COUPLE OF YEARS
     Route: 042

REACTIONS (2)
  - Completed suicide [Fatal]
  - Treatment noncompliance [Unknown]
